FAERS Safety Report 19005835 (Version 1)
Quarter: 2021Q1

REPORT INFORMATION
  Report Type: Spontaneous
  Country: ES (occurrence: ES)
  Receive Date: 20210314
  Receipt Date: 20210314
  Transmission Date: 20210420
  Serious: Yes (Other)
  Sender: FDA-Public Use
  Company Number: ES-ORGANON-O2103ESP001580

PATIENT
  Age: 86 Year
  Sex: Male
  Weight: 58 kg

DRUGS (2)
  1. RASAGILINA NORMON [Suspect]
     Active Substance: RASAGILINE TARTRATE
     Indication: PARKINSON^S DISEASE
     Dosage: RASAGILINA NORMON 1 MG TABLETS GENERIC, 30 TABLETS
     Route: 048
     Dates: start: 20210113
  2. SINEMET PLUS 25/100 MG COMPRIMIDOS [Suspect]
     Active Substance: CARBIDOPA\LEVODOPA
     Indication: PARKINSON^S DISEASE
     Dosage: 25 MILLIGRAM, QD, 100 TABLETS
     Route: 048
     Dates: start: 20210113

REACTIONS (4)
  - Diarrhoea [Unknown]
  - Dyspepsia [Unknown]
  - Feeling abnormal [Unknown]
  - Dizziness [Unknown]

NARRATIVE: CASE EVENT DATE: 20210128
